FAERS Safety Report 19410813 (Version 1)
Quarter: 2021Q2

REPORT INFORMATION
  Report Type: Spontaneous
  Country: US (occurrence: US)
  Receive Date: 20210614
  Receipt Date: 20210614
  Transmission Date: 20210717
  Serious: Yes (Other)
  Sender: FDA-Public Use
  Company Number: US-MACLEODS PHARMACEUTICALS US LTD-MAC2021031433

PATIENT

DRUGS (9)
  1. TRIMETHOPRIM/SULFAMETHOXAZOLE [Concomitant]
     Active Substance: SULFAMETHOXAZOLE\TRIMETHOPRIM
     Indication: PRODUCT USED FOR UNKNOWN INDICATION
     Dosage: UNK
     Route: 065
  2. OXACILLIN [Concomitant]
     Active Substance: OXACILLIN SODIUM
     Indication: PRODUCT USED FOR UNKNOWN INDICATION
     Dosage: UNK
     Route: 065
  3. CEFOTAXIME [Concomitant]
     Active Substance: CEFOTAXIME SODIUM
     Indication: PRODUCT USED FOR UNKNOWN INDICATION
     Dosage: UNK
     Route: 065
  4. ACYCLOVIR. [Suspect]
     Active Substance: ACYCLOVIR
     Indication: ORAL HERPES
     Dosage: 500 MILLIGRAM/SQ. METER, TID, (16.8 MG/KG) EVERY 8 H
     Route: 065
  5. MORPHINE SULFATE. [Concomitant]
     Active Substance: MORPHINE SULFATE
     Indication: PAIN
     Dosage: UNK
     Route: 065
  6. AMIKACIN. [Concomitant]
     Active Substance: AMIKACIN
     Dosage: UNK, (MODIFIED DOSE)
     Route: 065
  7. ACYCLOVIR. [Suspect]
     Active Substance: ACYCLOVIR
     Indication: STOMATITIS
  8. AMIKACIN. [Concomitant]
     Active Substance: AMIKACIN
     Indication: KLEBSIELLA INFECTION
     Dosage: 600 MICROGRAM/SQ. METER, QID, EVERY 6 H
     Route: 065
  9. AMIKACIN. [Concomitant]
     Active Substance: AMIKACIN
     Indication: ESCHERICHIA INFECTION
     Dosage: UNK, (ADJUSTED DOSE)
     Route: 065

REACTIONS (3)
  - Blood magnesium decreased [Recovered/Resolved]
  - Neurotoxicity [Recovered/Resolved]
  - Encephalopathy [Recovered/Resolved]
